FAERS Safety Report 8432538-4 (Version None)
Quarter: 2012Q2

REPORT INFORMATION
  Report Type: 
  Country: None (occurrence: None)
  Receive Date: 20120613
  Receipt Date: 20120603
  Transmission Date: 20120825
  Serious: Yes (Other)
  Sender: FDA-Public Use
  Company Number: CA-JNJFOC-20120602334

PATIENT
  Sex: Male
  Weight: 58 kg

DRUGS (2)
  1. REMICADE [Suspect]
     Indication: CROHN'S DISEASE
     Dosage: FOR 52 WEEKS
     Route: 042
     Dates: start: 20110101
  2. REMICADE [Suspect]
     Route: 042
     Dates: start: 20120603

REACTIONS (3)
  - CONFUSIONAL STATE [None]
  - INFUSION RELATED REACTION [None]
  - MENTAL IMPAIRMENT [None]
